FAERS Safety Report 8267447-7 (Version None)
Quarter: 2012Q2

REPORT INFORMATION
  Report Type: 
  Country: None (occurrence: None)
  Receive Date: 20120409
  Receipt Date: 20120404
  Transmission Date: 20120825
  Serious: Yes (Death, Other)
  Sender: FDA-Public Use
  Company Number: PHHY2011NL38942

PATIENT
  Sex: Male

DRUGS (18)
  1. ZOMETA [Suspect]
     Dosage: 4 MG/ 5 ML, 1X PER 28 DAYS
     Dates: start: 20110929
  2. PREDNISONE [Concomitant]
     Dosage: 5 MG X 2
  3. OXYCONTIN [Concomitant]
     Dosage: 20 MG, BID
  4. ZOMETA [Suspect]
     Dosage: 4 MG/ 5 ML, 1X PER 28 DAYS
     Dates: start: 20110606
  5. BICALUTAMIDE [Concomitant]
     Dosage: 50 MG, QD
  6. ACETAMINOPHEN [Concomitant]
     Dosage: 1 G X 2
  7. OXYCONTIN [Concomitant]
     Dosage: 10 MG, BID
  8. ZOMETA [Suspect]
     Dosage: 4 MG/ 5 ML, 1X PER 28 DAYS
     Dates: start: 20110412
  9. OMEPRAZOLE [Concomitant]
     Dosage: 20 MG, QD
  10. ZOMETA [Suspect]
     Dosage: 4 MG/ 5 ML, 1X PER 28 DAYS
     Dates: start: 20110829
  11. DEGARELIX [Concomitant]
  12. ZOMETA [Suspect]
     Dosage: 4 MG/ 100 ML, 1X PER 28 DAYS
     Dates: start: 20111222
  13. IBUPROFEN [Concomitant]
     Dosage: 400 MG, TID
  14. ZOMETA [Suspect]
     Dosage: 4 MG/ 5 ML, 1X PER 28 DAYS
     Dates: start: 20110509
  15. ZOMETA [Suspect]
     Dosage: 4 MG/ 100 ML, 1X PER 28 DAYS
     Dates: start: 20120120
  16. ZOMETA [Suspect]
     Indication: PROSTATE CANCER METASTATIC
     Dosage: 4 MG/ 5 ML, 1X PER 28 DAYS
     Dates: start: 20110220
  17. ZOMETA [Suspect]
     Dosage: 4 MG/ 5 ML, 1X PER 28 DAYS
     Dates: start: 20110629
  18. ACETAMINOPHEN [Concomitant]
     Dosage: 1 G, WHEN NEEDED

REACTIONS (12)
  - DEATH [None]
  - METASTASES TO LUNG [None]
  - PROSTATIC SPECIFIC ANTIGEN INCREASED [None]
  - MALAISE [None]
  - NEOPLASM MALIGNANT [None]
  - WEIGHT DECREASED [None]
  - BONE PAIN [None]
  - FATIGUE [None]
  - METASTASES TO LIVER [None]
  - METASTASES TO LARGE INTESTINE [None]
  - PAIN IN EXTREMITY [None]
  - NEOPLASM PROGRESSION [None]
